FAERS Safety Report 10296942 (Version 1)
Quarter: 2014Q3

REPORT INFORMATION
  Report Type: Spontaneous
  Country: US (occurrence: None)
  Receive Date: 20140708
  Receipt Date: 20140708
  Transmission Date: 20150326
  Serious: Yes (Hospitalization)
  Sender: FDA-Public Use
  Company Number: AUR-APL-2014-07180

PATIENT
  Age: 55 Year
  Sex: Male
  Weight: 120 kg

DRUGS (13)
  1. BACTRIM DS [Suspect]
     Active Substance: SULFAMETHOXAZOLE\TRIMETHOPRIM
     Indication: URINARY TRACT INFECTION
     Route: 048
     Dates: start: 20140604, end: 20140607
  2. METFORMIN [Suspect]
     Active Substance: METFORMIN HYDROCHLORIDE
     Indication: TYPE 2 DIABETES MELLITUS
     Route: 048
     Dates: start: 20080308, end: 20140608
  3. NEXIUM /01479302/ (ESOMEPRAZOLE MAGNESIUM) [Concomitant]
  4. ATENOLOL (ATENOLOL) [Concomitant]
     Active Substance: ATENOLOL
  5. TRAMADOL (TRAMADOL) [Concomitant]
     Active Substance: TRAMADOL
  6. GEMFIBROZIL (GEMFIBROZIL) [Concomitant]
     Active Substance: GEMFIBROZIL
  7. CELEXA /00582602/ (CYCLOBENZAPRINE HYDROCHLORIDE) [Concomitant]
  8. TRADJENTA (LINAGLIPTIN) [Concomitant]
  9. NIACIN (NICOTINIC ACID) [Concomitant]
  10. FISH OIL (FISH OIL) [Concomitant]
     Active Substance: FISH OIL
  11. FLEXERIL /00428402/ (CYCLOBENZAPRINE HYDROCHLORIDE) [Concomitant]
  12. LISINOPRIL. [Suspect]
     Active Substance: LISINOPRIL
     Indication: HYPERTENSION
     Route: 048
     Dates: start: 20060516, end: 20140608
  13. SULFAMETHOXAZOLE-TRIMETHOPRIM (SMZ) [Suspect]
     Active Substance: SULFAMETHOXAZOLE\TRIMETHOPRIM
     Indication: URINARY TRACT INFECTION
     Route: 048
     Dates: start: 20140604, end: 20140607

REACTIONS (4)
  - Pyrexia [None]
  - Escherichia urinary tract infection [None]
  - Renal failure acute [None]
  - Rash [None]

NARRATIVE: CASE EVENT DATE: 20140607
